FAERS Safety Report 7768116-X (Version None)
Quarter: 2011Q3

REPORT INFORMATION
  Report Type: 
  Country: None (occurrence: None)
  Receive Date: 20110922
  Receipt Date: 20110912
  Transmission Date: 20111222
  Serious: Yes (Hospitalization)
  Sender: FDA-Public Use
  Company Number: PL-UCBSA-037555

PATIENT
  Sex: Male
  Weight: 70 kg

DRUGS (11)
  1. LACOSAMIDE [Suspect]
     Indication: EPILEPSY
     Dosage: STARTED ON  30-AUG-2010 (UNKNOWN DOSE), VISIT  6  DOSE WAS 600MG/DAY, DOSE DECREASED 200 MG/WEEK
     Route: 048
     Dates: end: 20110722
  2. TOPIRAMATE [Concomitant]
     Dates: start: 20110418, end: 20110424
  3. TOPIRAMATE [Concomitant]
     Dosage: 50 MG AND 75 MG
     Dates: start: 20110509, end: 20110515
  4. TOPIRAMATE [Concomitant]
     Dosage: 25 MG AND 50 MG
     Dates: start: 20110425, end: 20110501
  5. TOPIRAMATE [Concomitant]
     Dosage: 75 MG AND 100 MG
     Dates: start: 20110523, end: 20110529
  6. TOPIRAMATE [Concomitant]
     Dates: start: 20110530, end: 20110707
  7. TOPIRAMATE [Concomitant]
     Indication: EPILEPSY
     Dates: start: 20110411, end: 20110417
  8. TOPIRAMATE [Concomitant]
     Dates: start: 20110516, end: 20110522
  9. TOPIRAMATE [Concomitant]
     Dates: start: 20110502, end: 20110508
  10. TOPIRAMATE [Concomitant]
     Dosage: DAILY DOSE: 100 MG
     Dates: start: 20110101
  11. TOPIRAMATE [Concomitant]
     Dates: start: 20110708, end: 20110101

REACTIONS (1)
  - ACUTE PSYCHOSIS [None]
